FAERS Safety Report 4336975-9 (Version None)
Quarter: 2004Q2

REPORT INFORMATION
  Report Type: 
  Country: None (occurrence: None)
  Receive Date: 20040408
  Receipt Date: 20031021
  Transmission Date: 20050107
  Serious: Yes (Death)
  Sender: FDA-Public Use
  Company Number: 2004022554

PATIENT
  Age: 3 Month
  Sex: Male
  Weight: 7.2 kg

DRUGS (1)
  1. DIPHENHYDRAMINE HCL [Suspect]
     Indication: INTENTIONAL OVERDOSE
     Dosage: UNSPECIFIED DOSE, ORAL
     Route: 048

REACTIONS (5)
  - CARDIAC ARREST [None]
  - COMA [None]
  - DRUG TOXICITY [None]
  - FEELING COLD [None]
  - VICTIM OF HOMICIDE [None]
